FAERS Safety Report 5383374-7 (Version None)
Quarter: 2007Q3

REPORT INFORMATION
  Report Type: 
  Country: None (occurrence: None)
  Receive Date: 20070705
  Receipt Date: 20070619
  Transmission Date: 20080115
  Serious: Yes (Other)
  Sender: FDA-Public Use
  Company Number: DSA_30162_2007

PATIENT
  Sex: Female

DRUGS (2)
  1. DILTIAZEM [Suspect]
     Dosage: (90 MG BID ORAL)
     Route: 048
     Dates: end: 20070501
  2. DILTIAZEM [Suspect]
     Dosage: (90 MG BID ORAL)
     Route: 048

REACTIONS (1)
  - ASTHMA [None]
